FAERS Safety Report 19362763 (Version 6)
Quarter: 2021Q4

REPORT INFORMATION
  Report Type: Spontaneous
  Country: US (occurrence: US)
  Receive Date: 20210602
  Receipt Date: 20211020
  Transmission Date: 20220303
  Serious: Yes (Hospitalization)
  Sender: FDA-Public Use
  Company Number: US-GLOBAL BLOOD THERAPEUTICS INC-US-GBT-21-01438

PATIENT
  Age: 23 Year
  Sex: Female

DRUGS (1)
  1. OXBRYTA [Suspect]
     Active Substance: VOXELOTOR
     Indication: Sickle cell disease
     Route: 048
     Dates: start: 20200902, end: 2021

REACTIONS (8)
  - Central venous catheterisation [Unknown]
  - Sickle cell anaemia with crisis [Not Recovered/Not Resolved]
  - Sickle cell disease [Unknown]
  - Hospitalisation [Unknown]
  - Fatigue [Not Recovered/Not Resolved]
  - Therapy interrupted [Unknown]
  - Product dose omission issue [Unknown]
  - Product distribution issue [Unknown]

NARRATIVE: CASE EVENT DATE: 20210101
